FAERS Safety Report 7671837-0 (Version None)
Quarter: 2011Q3

REPORT INFORMATION
  Report Type: 
  Country: None (occurrence: None)
  Receive Date: 20110809
  Receipt Date: 20110802
  Transmission Date: 20111222
  Serious: Yes (Hospitalization, Other)
  Sender: FDA-Public Use
  Company Number: US-BAYER-201023414NA

PATIENT
  Age: 29 Year
  Sex: Female
  Weight: 63 kg

DRUGS (17)
  1. FLUOXETINE [Concomitant]
     Indication: DEPRESSION
     Dosage: UNK
     Dates: start: 20090101, end: 20090201
  2. ANTI-ASTHMATICS [Concomitant]
  3. IBUPROFEN [Concomitant]
     Indication: PAIN
     Dosage: UNK
     Dates: start: 20090414
  4. ANTIMIGRAINE PREPARATIONS [Concomitant]
  5. DIFLUCAN [Concomitant]
     Dosage: 100 MG, UNK
     Dates: start: 20090430
  6. DROSPIRENONE AND ETHINYL ESTRADIOL [Suspect]
     Indication: CONTRACEPTION
     Dosage: UNK UNK, UNK
     Route: 048
     Dates: start: 20090101, end: 20090511
  7. BIAXIN [Concomitant]
     Indication: SINUSITIS
     Dosage: UNK
     Dates: start: 20090414
  8. AUGMENTIN '125' [Concomitant]
     Dosage: 875 MG, BID
     Dates: start: 20090420
  9. DROSPIRENONE AND ETHINYL ESTRADIOL [Suspect]
     Indication: ACNE
  10. DROSPIRENONE AND ETHINYL ESTRADIOL [Suspect]
     Indication: PREMENSTRUAL SYNDROME
  11. NSAID'S [Concomitant]
  12. DARVOCET [Concomitant]
     Indication: PAIN
     Dosage: UNK
     Dates: start: 20090423
  13. ANTIBIOTICS [Concomitant]
  14. ADVAIR DISKUS 100/50 [Concomitant]
     Dosage: UNK UNK, BID
     Dates: start: 20090423
  15. TUSSIONEX [Concomitant]
  16. ACIPHEX [Concomitant]
     Indication: DYSPEPSIA
     Dosage: UNK UNK, BID
     Dates: start: 20090423
  17. LEVAQUIN [Concomitant]
     Dosage: 500 MG, QD
     Dates: start: 20090423

REACTIONS (2)
  - PULMONARY EMBOLISM [None]
  - DEEP VEIN THROMBOSIS [None]
